FAERS Safety Report 9094377 (Version 1)
Quarter: 2013Q1

REPORT INFORMATION
  Report Type: Spontaneous
  Country: US (occurrence: None)
  Receive Date: 20130215
  Receipt Date: 20130215
  Transmission Date: 20140127
  Serious: Yes (Disabling)
  Sender: FDA-Public Use
  Company Number: None

PATIENT
  Age: 51 Year
  Sex: Male
  Weight: 81.65 kg

DRUGS (2)
  1. ROBAXIN [Suspect]
     Indication: BACK PAIN
     Dates: start: 20110622
  2. FLEXERIL [Suspect]
     Dates: start: 20110627

REACTIONS (2)
  - Back pain [None]
  - Impaired work ability [None]
